FAERS Safety Report 8835571 (Version 1)
Quarter: 2012Q4

REPORT INFORMATION
  Report Type: 
  Country: FR (occurrence: FR)
  Receive Date: 20121011
  Receipt Date: 20121011
  Transmission Date: 20130627
  Serious: No
  Sender: FDA-Public Use
  Company Number: FR-JNJFOC-20121001206

PATIENT
  Age: 7 None
  Sex: Male

DRUGS (2)
  1. DUROGESIC [Suspect]
     Indication: PREOPERATIVE CARE
     Route: 062
     Dates: start: 201208
  2. DUROGESIC [Suspect]
     Indication: PREOPERATIVE CARE
     Route: 062

REACTIONS (5)
  - Expired drug administered [Recovered/Resolved]
  - Off label use [Unknown]
  - Drug ineffective [Unknown]
  - Drug intolerance [Unknown]
  - Drug dispensing error [Unknown]
